FAERS Safety Report 16835224 (Version 1)
Quarter: 2019Q3

REPORT INFORMATION
  Report Type: Not Available
  Country: US (occurrence: US)
  Receive Date: 20190920
  Receipt Date: 20190920
  Transmission Date: 20191005
  Serious: Yes (Hospitalization, Other)
  Sender: FDA-Public Use
  Company Number: US-SERVIER-S19009733

PATIENT

DRUGS (7)
  1. TN UNSPECIFIED [DAUNORUBICIN HYDROCHLORIDE] [Suspect]
     Active Substance: DAUNORUBICIN HYDROCHLORIDE
     Indication: ACUTE LYMPHOCYTIC LEUKAEMIA
     Dosage: UNK, ON D1, D8, D15, D22
     Route: 042
  2. TN UNSPECIFIED [CYTARABINE] [Suspect]
     Active Substance: CYTARABINE
     Indication: ACUTE LYMPHOCYTIC LEUKAEMIA
     Dosage: UNK, ON D1
     Route: 037
  3. TN UNSPECIFIED [METHOTREXATE SODIUM] [Suspect]
     Active Substance: METHOTREXATE SODIUM
     Indication: ACUTE LYMPHOCYTIC LEUKAEMIA
     Dosage: 5 G/M2, ON D8, D29
     Route: 037
  4. TN UNSPECIFIED [VINCRISTINE SULFATE] [Suspect]
     Active Substance: VINCRISTINE SULFATE
     Indication: ACUTE LYMPHOCYTIC LEUKAEMIA
     Dosage: UNK, ON D1, D8, D15, D22
     Route: 042
  5. ONCASPAR [Suspect]
     Active Substance: PEGASPARGASE
     Indication: ACUTE LYMPHOCYTIC LEUKAEMIA
     Dosage: UNK, ON D4, D5 OR D6
     Route: 030
  6. TN UNSPECIFIED [DEXAMETHASONE SODIUM SUCCINATE] [Suspect]
     Active Substance: DEXAMETHASONE SODIUM SUCCINATE
     Indication: ACUTE LYMPHOCYTIC LEUKAEMIA
     Dosage: 10 MG/M2, BID, ON D1-14
     Route: 042
  7. TN UNSPECIFIED [METHOTREXATE SODIUM] [Suspect]
     Active Substance: METHOTREXATE SODIUM
     Dosage: 2G/M2, ON D8, D29
     Route: 037

REACTIONS (6)
  - Neuralgia [Unknown]
  - Drug interaction [Unknown]
  - Chronic kidney disease [Unknown]
  - Mucormycosis [Recovering/Resolving]
  - Pancreatitis [Recovered/Resolved]
  - Hypertension [Unknown]

NARRATIVE: CASE EVENT DATE: 200911
